FAERS Safety Report 10868491 (Version 2)
Quarter: 2015Q2

REPORT INFORMATION
  Report Type: Spontaneous
  Country: US (occurrence: US)
  Receive Date: 20150225
  Receipt Date: 20150406
  Transmission Date: 20150821
  Serious: Yes (Death, Hospitalization, Other)
  Sender: FDA-Public Use
  Company Number: US-PFIZER INC-2015066599

PATIENT
  Age: 86 Year
  Sex: Female
  Weight: 56 kg

DRUGS (3)
  1. MINOXIDIL. [Concomitant]
     Active Substance: MINOXIDIL
     Dosage: 1X/DAY, LOW DOSE
  2. LEVOTHYROXINE [Concomitant]
     Active Substance: LEVOTHYROXINE
     Indication: HYPOTHYROIDISM
     Dosage: 75 MCG OR 67 MCG, 1X/DAY
  3. SUTENT [Suspect]
     Active Substance: SUNITINIB MALATE
     Indication: RENAL CANCER
     Dosage: 37 MG TOTAL
     Dates: start: 2011

REACTIONS (11)
  - Vena cava thrombosis [Fatal]
  - Cerebrovascular accident [Fatal]
  - Delirium [Unknown]
  - Fall [Unknown]
  - Pneumonia [Fatal]
  - Pelvic fracture [Fatal]
  - Renal injury [Fatal]
  - Hepatic enzyme increased [Fatal]
  - Myocardial infarction [Fatal]
  - Blood pressure decreased [Unknown]
  - Liver injury [Fatal]

NARRATIVE: CASE EVENT DATE: 201406
